FAERS Safety Report 5807997-3 (Version None)
Quarter: 2008Q3

REPORT INFORMATION
  Report Type: 
  Country: None (occurrence: None)
  Receive Date: 20080711
  Receipt Date: 20080701
  Transmission Date: 20090109
  Serious: Yes (Other)
  Sender: FDA-Public Use
  Company Number: US-PFIZER INC-2008055994

PATIENT
  Sex: Female

DRUGS (4)
  1. NEURONTIN [Suspect]
     Indication: PAIN
  2. GABAPENTIN [Suspect]
     Indication: PAIN
     Dates: start: 20080601, end: 20080630
  3. TYLENOL [Concomitant]
  4. ACTONEL [Concomitant]

REACTIONS (6)
  - ABDOMINAL PAIN UPPER [None]
  - FALL [None]
  - HEADACHE [None]
  - HYPERHIDROSIS [None]
  - PRURITUS [None]
  - WEIGHT DECREASED [None]
